FAERS Safety Report 9440984 (Version 2)
Quarter: 2013Q3

REPORT INFORMATION
  Report Type: Spontaneous
  Country: US (occurrence: None)
  Receive Date: 20130801
  Receipt Date: 20130828
  Transmission Date: 20140515
  Serious: Yes (Other)
  Sender: FDA-Public Use
  Company Number: JPI-P-034069

PATIENT
  Age: 55 Year
  Sex: Female
  Weight: 81.65 kg

DRUGS (8)
  1. XYREM [Suspect]
     Indication: NARCOLEPSY
     Route: 048
     Dates: start: 20130513, end: 2013
  2. ATORVASTATIN [Suspect]
     Indication: BLOOD CHOLESTEROL INCREASED
     Dates: end: 201307
  3. LEVOTHYROXINE SODIUM [Concomitant]
  4. HYDROCHLOROTHIAZIDE [Concomitant]
  5. METHYLPHENIDATE [Concomitant]
  6. INHALERS [Concomitant]
  7. VITAMIN D [Concomitant]
  8. ANTI DEPRESSANT [Concomitant]

REACTIONS (1)
  - Alanine aminotransferase increased [None]
